FAERS Safety Report 4314400-1 (Version None)
Quarter: 2004Q1

REPORT INFORMATION
  Report Type: 
  Country: None (occurrence: None)
  Receive Date: 20040309
  Receipt Date: 20040304
  Transmission Date: 20041129
  Serious: Yes (Death, Hospitalization)
  Sender: FDA-Public Use
  Company Number: DE-GLAXOSMITHKLINE-A0501150A

PATIENT
  Age: 74 Year
  Sex: Male

DRUGS (10)
  1. NAVELBINE [Suspect]
     Indication: NON-SMALL CELL LUNG CANCER METASTATIC
     Dosage: 46MG SEE DOSAGE TEXT
     Route: 042
     Dates: end: 20040107
  2. CARBOPLATIN [Concomitant]
     Indication: NON-SMALL CELL LUNG CANCER
     Dates: start: 20040107
  3. ASPIRIN [Concomitant]
  4. NOVODIGAL [Concomitant]
  5. PANTOZOL [Concomitant]
  6. SPIRIVA [Concomitant]
  7. MORPHINE SULFATE [Concomitant]
  8. BIFITERAL [Concomitant]
  9. IBUPROFEN [Concomitant]
  10. ISOPTIN TAB [Concomitant]

REACTIONS (8)
  - ABDOMINAL PAIN [None]
  - BACK PAIN [None]
  - ILEUS PARALYTIC [None]
  - NEOPLASM PROGRESSION [None]
  - OSTEOLYSIS [None]
  - PELVIC PAIN [None]
  - PERITONITIS [None]
  - PNEUMOPERITONEUM [None]
